FAERS Safety Report 26173849 (Version 1)
Quarter: 2025Q4

REPORT INFORMATION
  Report Type: Spontaneous
  Country: US (occurrence: US)
  Receive Date: 20251218
  Receipt Date: 20251218
  Transmission Date: 20260118
  Serious: No
  Sender: ALVOGEN
  Company Number: US-ALVOGEN-2025096276

PATIENT
  Sex: Female

DRUGS (4)
  1. FENTANYL [Suspect]
     Active Substance: FENTANYL
     Indication: Product used for unknown indication
     Dosage: FELT CHANGES IN THE DRUG
     Route: 062
     Dates: start: 2025
  2. FENTANYL [Suspect]
     Active Substance: FENTANYL
     Indication: Product used for unknown indication
     Dosage: EXPIRATION DATE: APR-2027?2 PATCHES LEFT FROM THE BOX?STRENGTH: 25 MCG/HR
     Route: 062
     Dates: start: 202501
  3. FENTANYL [Suspect]
     Active Substance: FENTANYL
     Indication: Product used for unknown indication
     Dosage: 2 YEARS SHE STARTED WITH ALVOGEN FENTANYL PATCHES?ADHESION ISSUE IN PAST
     Route: 062
     Dates: start: 2023
  4. FENTANYL [Concomitant]
     Active Substance: FENTANYL
     Indication: Product used for unknown indication
     Dosage: GOTTEN A DIFFERENT GENERIC OCCASIONALLY AND THEY DON^T ADHERE AS WELL.
     Route: 062

REACTIONS (5)
  - Nausea [Not Recovered/Not Resolved]
  - Malaise [Unknown]
  - Wrong technique in device usage process [Unknown]
  - Device malfunction [Unknown]
  - Device adhesion issue [Unknown]

NARRATIVE: CASE EVENT DATE: 20250204
